FAERS Safety Report 8572216-4 (Version None)
Quarter: 2012Q3

REPORT INFORMATION
  Report Type: 
  Country: None (occurrence: None)
  Receive Date: 20120806
  Receipt Date: 20120727
  Transmission Date: 20120928
  Serious: Yes (Hospitalization, Other)
  Sender: FDA-Public Use
  Company Number: JP-ASTELLAS-2012US006620

PATIENT
  Sex: Male

DRUGS (16)
  1. GEMCITABINE HYDROCHLORIDE [Suspect]
     Dosage: 1500 MG/M2, UID/QD
     Route: 041
     Dates: start: 20120725
  2. ERLOTINIB HYDROCHLORIDE [Suspect]
     Indication: ADENOCARCINOMA PANCREAS
     Dosage: 100 MG, UID/QD
     Route: 048
     Dates: start: 20120515, end: 20120522
  3. ERLOTINIB HYDROCHLORIDE [Suspect]
     Dosage: 100 MG, UID/QD
     Route: 048
     Dates: start: 20120604, end: 20120607
  4. GEMCITABINE HYDROCHLORIDE [Suspect]
     Dosage: 1500 MG/M2, UID/QD
     Route: 041
     Dates: start: 20120620, end: 20120620
  5. GEMCITABINE HYDROCHLORIDE [Suspect]
     Dosage: 1500 MG/M2, UID/QD
     Route: 041
     Dates: start: 20120704, end: 20120704
  6. NEXIUM [Concomitant]
     Indication: GASTRITIS
     Dosage: 10 MG, UID/QD
     Route: 048
  7. TAMSULOSIN HCL [Concomitant]
     Indication: PRODUCT USED FOR UNKNOWN INDICATION
     Dosage: UNK
     Route: 065
  8. GEMCITABINE HYDROCHLORIDE [Suspect]
     Dosage: 1530 MG/M2, UID/QD
     Route: 041
     Dates: start: 20120604, end: 20120604
  9. GEMCITABINE HYDROCHLORIDE [Suspect]
     Dosage: 1500 MG/M2, UID/QD
     Route: 041
     Dates: start: 20120611, end: 20120611
  10. OLOPATADINE HCL [Concomitant]
     Indication: PRURITUS
     Dosage: 1 MG, UID/QD
     Route: 048
  11. HACHIMIJIOGAN [Concomitant]
     Indication: BENIGN PROSTATIC HYPERPLASIA
     Dosage: 5 G, UID/QD
     Route: 048
  12. GEMCITABINE HYDROCHLORIDE [Suspect]
     Indication: ADENOCARCINOMA PANCREAS
     Dosage: 1530 MG/M2, UID/QD
     Route: 041
     Dates: start: 20120515, end: 20120515
  13. GEMCITABINE HYDROCHLORIDE [Suspect]
     Dosage: 1530 MG/M2, UID/QD
     Route: 041
     Dates: start: 20120521, end: 20120521
  14. GEMCITABINE HYDROCHLORIDE [Suspect]
     Dosage: 1500 MG/M2, UID/QD
     Route: 041
     Dates: start: 20120711, end: 20120711
  15. TAMSULOSIN HCL [Concomitant]
     Indication: BENIGN PROSTATIC HYPERPLASIA
     Dosage: 0.2 MG, UID/QD
     Route: 048
  16. ERLOTINIB HYDROCHLORIDE [Suspect]
     Dosage: 100 MG, UID/QD
     Route: 048
     Dates: start: 20120620, end: 20120717

REACTIONS (3)
  - NEUTROPHIL COUNT DECREASED [None]
  - PYREXIA [None]
  - RASH [None]
